FAERS Safety Report 16775465 (Version 2)
Quarter: 2019Q3

REPORT INFORMATION
  Report Type: Spontaneous
  Country: US (occurrence: US)
  Receive Date: 20190905
  Receipt Date: 20190905
  Transmission Date: 20191005
  Serious: Yes (Death)
  Sender: FDA-Public Use
  Company Number: US-PFIZER INC-2019373913

PATIENT
  Age: 62 Year
  Sex: Female

DRUGS (5)
  1. METHYLPREDNISOLONE SODIUM SUCCINATE. [Suspect]
     Active Substance: METHYLPREDNISOLONE SODIUM SUCCINATE
     Indication: VENTRICULAR TACHYCARDIA
     Dosage: 2 G, UNK (FOR 3 DAYS)
  2. INFLIXIMAB [Suspect]
     Active Substance: INFLIXIMAB
     Indication: ATRIOVENTRICULAR BLOCK COMPLETE
  3. NIVOLUMAB [Concomitant]
     Active Substance: NIVOLUMAB
     Indication: METASTATIC RENAL CELL CARCINOMA
     Dosage: UNK
  4. METHYLPREDNISOLONE SODIUM SUCCINATE. [Suspect]
     Active Substance: METHYLPREDNISOLONE SODIUM SUCCINATE
     Indication: ATRIOVENTRICULAR BLOCK COMPLETE
  5. INFLIXIMAB [Suspect]
     Active Substance: INFLIXIMAB
     Indication: VENTRICULAR TACHYCARDIA
     Dosage: 5 MG/KG, UNK (1 DOSE)

REACTIONS (4)
  - Product use in unapproved indication [Unknown]
  - Bacteraemia [Fatal]
  - Off label use [Unknown]
  - Pulmonary embolism [Fatal]
